FAERS Safety Report 7386341-7 (Version None)
Quarter: 2011Q1

REPORT INFORMATION
  Report Type: 
  Country: None (occurrence: None)
  Receive Date: 20110331
  Receipt Date: 20110318
  Transmission Date: 20110831
  Serious: Yes (Other)
  Sender: FDA-Public Use
  Company Number: PHEH2006US01235

PATIENT
  Sex: Female
  Weight: 75.283 kg

DRUGS (30)
  1. CIPROFLOXACIN [Concomitant]
  2. VIOXX [Concomitant]
  3. PREVACID [Concomitant]
  4. FLEXERIL [Concomitant]
  5. IBUPROFEN [Concomitant]
  6. DALTEPARIN SODIUM [Concomitant]
  7. REGLAN [Concomitant]
  8. ACETAMINOPHEN AND HYDROCODONE BITARTRATE [Concomitant]
  9. VENLAFAXINE HCL [Concomitant]
  10. LORAZEPAM [Concomitant]
  11. ZOLOFT [Concomitant]
     Dosage: UNK, UNK
  12. ALPRAZOLAM [Concomitant]
  13. EFFEXOR XR [Concomitant]
  14. XANAX [Concomitant]
  15. NOLVADEX [Concomitant]
  16. NEURONTIN [Concomitant]
  17. ZOMETA [Suspect]
     Dosage: 4 MG IV Q3MOS
     Dates: start: 20031118, end: 20050201
  18. AREDIA [Suspect]
     Dosage: UNK, UNK
  19. ORUVAIL [Concomitant]
  20. OYSTER SHELL CALCIUM WITH VITAMIN D [Concomitant]
  21. ERYTHROMYCIN [Concomitant]
  22. COMPAZINE [Concomitant]
  23. PHENERGAN [Concomitant]
  24. CYCLOBENZAPRINE HYDROCHLORIDE [Concomitant]
  25. ZOFRAN [Concomitant]
  26. DECADRON [Concomitant]
  27. AMITRIPTYLINE HYDROCHLORIDE [Concomitant]
  28. HYDROCHLOROTHIAZIDE [Concomitant]
  29. PROTONIX [Concomitant]
  30. PANNAZ [Concomitant]

REACTIONS (39)
  - UTERINE CANCER [None]
  - NEOPLASM SKIN [None]
  - DEPRESSION [None]
  - HERPES ZOSTER [None]
  - DIARRHOEA [None]
  - MUSCULOSKELETAL PAIN [None]
  - ORAL DISCHARGE [None]
  - CHEST PAIN [None]
  - BACK PAIN [None]
  - COUGH [None]
  - PRIMARY SEQUESTRUM [None]
  - RECTOCELE [None]
  - UPPER RESPIRATORY TRACT INFECTION [None]
  - GASTROOESOPHAGEAL REFLUX DISEASE [None]
  - ABDOMINAL PAIN [None]
  - CYSTOCELE [None]
  - FALL [None]
  - PAIN [None]
  - IMPAIRED HEALING [None]
  - BONE FORMATION DECREASED [None]
  - ROAD TRAFFIC ACCIDENT [None]
  - MUSCULOSKELETAL STIFFNESS [None]
  - ALVEOLAR OSTEITIS [None]
  - BONE FRAGMENTATION [None]
  - POLLAKIURIA [None]
  - DYSPAREUNIA [None]
  - ACUTE SINUSITIS [None]
  - PNEUMONIA BACTERIAL [None]
  - OSTEONECROSIS OF JAW [None]
  - BONE DISORDER [None]
  - MUSCLE SPASMS [None]
  - PELVIC PAIN [None]
  - NECK PAIN [None]
  - NEOPLASM MALIGNANT [None]
  - ROTATOR CUFF SYNDROME [None]
  - ANXIETY [None]
  - HYPOAESTHESIA [None]
  - PYREXIA [None]
  - PAIN IN EXTREMITY [None]
